FAERS Safety Report 8049599 (Version 2)
Quarter: 2013Q1

REPORT INFORMATION
  Report Type: Spontaneous
  Country: US (occurrence: US)
  Receive Date: 20110722
  Receipt Date: 20130130
  Transmission Date: 20140127
  Serious: Yes (Other)
  Sender: FDA-Public Use
  Company Number: US-ROCHE-772928

PATIENT
  Age: 20 Year
  Sex: Male
  Weight: 54.4 kg

DRUGS (4)
  1. ACCUTANE [Suspect]
     Indication: ACNE
     Route: 065
     Dates: start: 200310, end: 200404
  2. ACCUTANE [Suspect]
     Route: 065
     Dates: start: 200412, end: 200505
  3. AMNESTEEM [Suspect]
     Indication: PRODUCT USED FOR UNKNOWN INDICATION
     Route: 065
     Dates: start: 200310, end: 200404
  4. AMNESTEEM [Suspect]
     Route: 065
     Dates: start: 200412, end: 200505

REACTIONS (3)
  - Crohn^s disease [Unknown]
  - Inflammatory bowel disease [Unknown]
  - Intestinal obstruction [Unknown]
